FAERS Safety Report 24182366 (Version 4)
Quarter: 2025Q2

REPORT INFORMATION
  Report Type: Report from Study
  Country: GB (occurrence: GB)
  Receive Date: 20240807
  Receipt Date: 20250526
  Transmission Date: 20250717
  Serious: Yes (Other)
  Sender: TAKEDA
  Company Number: GB-TAKEDA-2024TUS077760

PATIENT
  Sex: Male

DRUGS (4)
  1. VEDOLIZUMAB [Suspect]
     Active Substance: VEDOLIZUMAB
     Indication: Colitis ulcerative
  2. VEDOLIZUMAB [Suspect]
     Active Substance: VEDOLIZUMAB
     Indication: Colitis ulcerative
  3. VEDOLIZUMAB [Suspect]
     Active Substance: VEDOLIZUMAB
     Dosage: 108 MILLIGRAM, Q2WEEKS
     Dates: end: 202504
  4. VEDOLIZUMAB [Suspect]
     Active Substance: VEDOLIZUMAB
     Dosage: 108 MILLIGRAM, Q2WEEKS
     Dates: end: 202504

REACTIONS (3)
  - Colitis ulcerative [Unknown]
  - Haematochezia [Unknown]
  - Drug ineffective [Unknown]
